FAERS Safety Report 10563947 (Version 3)
Quarter: 2015Q4

REPORT INFORMATION
  Report Type: Report from Study
  Country: JP (occurrence: JP)
  Receive Date: 20141104
  Receipt Date: 20151104
  Transmission Date: 20160304
  Serious: Yes (Life-Threatening, Hospitalization, Other)
  Sender: FDA-Public Use
  Company Number: JP-SA-2014SA148303

PATIENT
  Age: 12 Year
  Sex: Male

DRUGS (32)
  1. PENTCILLIN [Concomitant]
     Active Substance: PIPERACILLIN SODIUM
     Indication: PANCREATITIS CHRONIC
     Route: 042
     Dates: start: 20140910, end: 20140925
  2. HYDROCORTISONE. [Concomitant]
     Active Substance: HYDROCORTISONE
     Indication: ACUTE LYMPHOCYTIC LEUKAEMIA
     Dosage: 25 MG/BODY INTRASPINAL
     Dates: start: 20141020, end: 20141020
  3. HYDROCORTISONE. [Concomitant]
     Active Substance: HYDROCORTISONE
     Indication: ACUTE LYMPHOCYTIC LEUKAEMIA
     Dosage: 25 MG/BODY INTRASPINAL
     Dates: start: 20150520, end: 20150520
  4. EVOLTRA [Suspect]
     Active Substance: CLOFARABINE
     Indication: ACUTE LYMPHOCYTIC LEUKAEMIA RECURRENT
     Dosage: EVOLTRA (20 MG)
     Route: 042
     Dates: start: 20140923, end: 20140925
  5. EVOLTRA [Suspect]
     Active Substance: CLOFARABINE
     Indication: ACUTE LYMPHOCYTIC LEUKAEMIA RECURRENT
     Route: 042
     Dates: start: 20150514, end: 20150518
  6. EVOLTRA [Suspect]
     Active Substance: CLOFARABINE
     Indication: ACUTE LYMPHOCYTIC LEUKAEMIA RECURRENT
     Route: 042
     Dates: start: 20150806, end: 20150810
  7. EVOLTRA [Suspect]
     Active Substance: CLOFARABINE
     Indication: ACUTE LYMPHOCYTIC LEUKAEMIA RECURRENT
     Route: 042
     Dates: start: 20150212, end: 20150215
  8. MICAFUNGIN [Suspect]
     Active Substance: MICAFUNGIN
     Route: 065
     Dates: start: 20140817, end: 20150115
  9. CYLOCIDE [Suspect]
     Active Substance: CYTARABINE
     Indication: ACUTE LYMPHOCYTIC LEUKAEMIA RECURRENT
     Dosage: 25 MG/M2 OR BODY??IV OR INTRASEPTAL
     Dates: start: 20141020, end: 20141020
  10. CYLOCIDE [Suspect]
     Active Substance: CYTARABINE
     Indication: ACUTE LYMPHOCYTIC LEUKAEMIA RECURRENT
     Route: 042
     Dates: start: 20141213, end: 20141216
  11. EVOLTRA [Suspect]
     Active Substance: CLOFARABINE
     Indication: ACUTE LYMPHOCYTIC LEUKAEMIA RECURRENT
     Route: 042
     Dates: start: 20141113, end: 20141116
  12. LEUKERIN [Suspect]
     Active Substance: MERCAPTOPURINE
     Indication: ACUTE LYMPHOCYTIC LEUKAEMIA RECURRENT
     Route: 048
     Dates: start: 201412, end: 20141225
  13. CYLOCIDE [Suspect]
     Active Substance: CYTARABINE
     Indication: ACUTE LYMPHOCYTIC LEUKAEMIA RECURRENT
     Dosage: 25 MG/M2 OR BODY??IV OR INTRASEPTAL
     Dates: start: 20141118, end: 20141118
  14. CYLOCIDE [Suspect]
     Active Substance: CYTARABINE
     Indication: ACUTE LYMPHOCYTIC LEUKAEMIA RECURRENT
     Route: 042
     Dates: start: 20141208, end: 20141208
  15. METHOTREXATE [Concomitant]
     Active Substance: METHOTREXATE
     Indication: ACUTE LYMPHOCYTIC LEUKAEMIA
     Dosage: 12.5 MG/BODY INTRASPINAL
     Dates: start: 20150520, end: 20150520
  16. METHOTREXATE [Concomitant]
     Active Substance: METHOTREXATE
     Indication: ACUTE LYMPHOCYTIC LEUKAEMIA
     Dosage: 12.5 MG/BODY INTRASPINAL
     Dates: start: 20150812, end: 20150812
  17. HYDROCORTISONE. [Concomitant]
     Active Substance: HYDROCORTISONE
     Indication: ACUTE LYMPHOCYTIC LEUKAEMIA
     Dosage: 25 MG/BODY INTRASPINAL
     Dates: start: 20141208, end: 20141208
  18. EVOLTRA [Suspect]
     Active Substance: CLOFARABINE
     Indication: ACUTE LYMPHOCYTIC LEUKAEMIA RECURRENT
     Route: 042
     Dates: start: 20141013, end: 20141016
  19. VORICONAZOLE. [Suspect]
     Active Substance: VORICONAZOLE
     Dosage: DOSE: 180 MG BID (I.V.) OR 200 MG/DAY, BID (P.O.)
     Dates: start: 20140823, end: 20150813
  20. METHOTREXATE [Concomitant]
     Active Substance: METHOTREXATE
     Indication: ACUTE LYMPHOCYTIC LEUKAEMIA
     Dosage: 12.5 MG/BODY INTRASPINAL
     Dates: start: 20150217, end: 20150217
  21. CYLOCIDE [Suspect]
     Active Substance: CYTARABINE
     Indication: ACUTE LYMPHOCYTIC LEUKAEMIA RECURRENT
     Route: 042
     Dates: start: 20141219, end: 20141223
  22. METHOTREXATE [Concomitant]
     Active Substance: METHOTREXATE
     Indication: ACUTE LYMPHOCYTIC LEUKAEMIA
     Dosage: 12.5 MG/BODY INTRASPINAL
     Dates: start: 20141118, end: 20141118
  23. HYDROCORTISONE. [Concomitant]
     Active Substance: HYDROCORTISONE
     Indication: ACUTE LYMPHOCYTIC LEUKAEMIA
     Dosage: 25 MG/BODY INTRASPINAL
     Dates: start: 20141118, end: 20141118
  24. LEUKERIN [Suspect]
     Active Substance: MERCAPTOPURINE
     Indication: ACUTE LYMPHOCYTIC LEUKAEMIA RECURRENT
     Route: 048
     Dates: start: 20141208
  25. CYLOCIDE [Suspect]
     Active Substance: CYTARABINE
     Indication: ACUTE LYMPHOCYTIC LEUKAEMIA RECURRENT
     Dosage: DOSE: 25 MG/BODY
     Route: 024
     Dates: start: 20150217, end: 20150217
  26. CYLOCIDE [Suspect]
     Active Substance: CYTARABINE
     Indication: ACUTE LYMPHOCYTIC LEUKAEMIA RECURRENT
     Dosage: DOSE: 25 MG/BODY
     Route: 024
     Dates: start: 20150520, end: 20150520
  27. CYLOCIDE [Suspect]
     Active Substance: CYTARABINE
     Indication: ACUTE LYMPHOCYTIC LEUKAEMIA RECURRENT
     Dosage: DOSE: 25 MG/BODY
     Route: 024
     Dates: start: 20150812, end: 20150812
  28. METHOTREXATE [Concomitant]
     Active Substance: METHOTREXATE
     Indication: ACUTE LYMPHOCYTIC LEUKAEMIA
     Dosage: 12.5 MG/BODY INTRASPINAL
     Dates: start: 20141020, end: 20141020
  29. HYDROCORTISONE. [Concomitant]
     Active Substance: HYDROCORTISONE
     Indication: ACUTE LYMPHOCYTIC LEUKAEMIA
     Dosage: 25 MG/BODY INTRASPINAL
     Dates: start: 20150812, end: 20150812
  30. ENDOXAN [Suspect]
     Active Substance: CYCLOPHOSPHAMIDE
     Indication: ACUTE LYMPHOCYTIC LEUKAEMIA RECURRENT
     Route: 042
     Dates: start: 20141208, end: 20141208
  31. METHOTREXATE [Concomitant]
     Active Substance: METHOTREXATE
     Indication: ACUTE LYMPHOCYTIC LEUKAEMIA
     Dosage: 12.5 MG/BODY INTRASPINAL
     Dates: start: 20141208, end: 20141208
  32. HYDROCORTISONE. [Concomitant]
     Active Substance: HYDROCORTISONE
     Indication: ACUTE LYMPHOCYTIC LEUKAEMIA
     Dosage: 25 MG/BODY INTRASPINAL
     Dates: start: 20150217, end: 20150217

REACTIONS (7)
  - Cystitis viral [Recovered/Resolved]
  - Lymphocyte count decreased [Recovering/Resolving]
  - Liver disorder [Recovering/Resolving]
  - Renal impairment [Recovered/Resolved]
  - Hypercalcaemia [Recovering/Resolving]
  - Pancreatitis [Recovering/Resolving]
  - Renal impairment [Recovering/Resolving]

NARRATIVE: CASE EVENT DATE: 20140926
